FAERS Safety Report 10946103 (Version 3)
Quarter: 2015Q3

REPORT INFORMATION
  Report Type: Spontaneous
  Country: US (occurrence: US)
  Receive Date: 20150323
  Receipt Date: 20150729
  Transmission Date: 20151125
  Serious: Yes (Hospitalization)
  Sender: FDA-Public Use
  Company Number: US-BAYER-2015-051388

PATIENT
  Age: 21 Year
  Sex: Female
  Weight: 63.49 kg

DRUGS (2)
  1. MIRENA [Suspect]
     Active Substance: LEVONORGESTREL
     Indication: CONTRACEPTION
     Dosage: 20 MCG/24HR, CONT
     Route: 015
     Dates: start: 20130104, end: 20130510
  2. PRENATAL VITAMINS [VIT C,B5,B12,D2,B3,B6,RETINOL PALMIT,B2,B1 MONO [Concomitant]
     Dosage: UNK
     Dates: start: 20120312, end: 20130418

REACTIONS (4)
  - Pain [None]
  - Uterine perforation [None]
  - Abdominal pain [None]
  - Injury [None]

NARRATIVE: CASE EVENT DATE: 201304
